FAERS Safety Report 7792667-5 (Version None)
Quarter: 2011Q4

REPORT INFORMATION
  Report Type: 
  Country: None (occurrence: None)
  Receive Date: 20111003
  Receipt Date: 20110928
  Transmission Date: 20120403
  Serious: Yes (Hospitalization, Other)
  Sender: FDA-Public Use
  Company Number: US-ALEXION-A201100412

PATIENT
  Sex: Female
  Weight: 61 kg

DRUGS (13)
  1. HORMONES NOS [Concomitant]
     Indication: HORMONE REPLACEMENT THERAPY
     Dosage: UNK
  2. MULTI-VITAMIN [Concomitant]
     Dosage: UNK, QD
  3. FOLIC ACID [Concomitant]
     Dosage: 100 MG, QD
  4. VITAMIN D [Concomitant]
     Dosage: 1000 IU, QD
  5. ARANESP [Concomitant]
     Indication: HAEMOGLOBIN DECREASED
     Dosage: 300 UG, Q2W PRN FOR HGB {11.8
     Route: 058
  6. CALCIUM CARBONATE [Concomitant]
     Dosage: 600 MG, BID
  7. SOLIRIS [Suspect]
     Indication: PAROXYSMAL NOCTURNAL HAEMOGLOBINURIA
     Dosage: 600 MG, QW
     Route: 042
     Dates: start: 20110310, end: 20110331
  8. SOLIRIS [Suspect]
     Dosage: 900 MG, Q2W
     Route: 042
     Dates: start: 20110407, end: 20110707
  9. SOLIRIS [Suspect]
     Dosage: 900 MG, Q2W
     Route: 042
     Dates: start: 20110825
  10. LEVOTHYROXINE [Concomitant]
     Dosage: 0.75 UG, QD
     Route: 048
  11. PAROXETINE HCL [Concomitant]
     Dosage: 10 MG, QD
     Route: 048
  12. GLUCOSAMINE/CHONDROITIN [Concomitant]
     Dosage: UNK, QD
     Route: 048
  13. ALENDRONATE SODIUM [Concomitant]
     Dosage: 70 MG, QW

REACTIONS (33)
  - OROPHARYNGEAL PAIN [None]
  - MUSCLE SPASMS [None]
  - RED BLOOD CELL COUNT DECREASED [None]
  - DIZZINESS [None]
  - CONDITION AGGRAVATED [None]
  - CATHETER PLACEMENT [None]
  - PLATELET TRANSFUSION [None]
  - BLOOD POTASSIUM DECREASED [None]
  - COUGH [None]
  - DYSPNOEA EXERTIONAL [None]
  - BLOOD GLUCOSE INCREASED [None]
  - GAIT DISTURBANCE [None]
  - FATIGUE [None]
  - CONTUSION [None]
  - APLASTIC ANAEMIA [None]
  - OEDEMA PERIPHERAL [None]
  - HYPERTENSION [None]
  - HAEMOLYSIS [None]
  - HAEMATOCRIT DECREASED [None]
  - HAEMOGLOBIN DECREASED [None]
  - FEELING ABNORMAL [None]
  - WHITE BLOOD CELL COUNT DECREASED [None]
  - DRUG INEFFECTIVE [None]
  - TRANSFUSION [None]
  - BLOOD COUNT ABNORMAL [None]
  - ORAL DISORDER [None]
  - PLATELET COUNT DECREASED [None]
  - CHROMATURIA [None]
  - FLUSHING [None]
  - HEADACHE [None]
  - MYELODYSPLASTIC SYNDROME [None]
  - CLONAL EVOLUTION [None]
  - DECREASED APPETITE [None]
